FAERS Safety Report 4460741-7 (Version None)
Quarter: 2004Q3

REPORT INFORMATION
  Report Type: 
  Country: None (occurrence: None)
  Receive Date: 20040928
  Receipt Date: 20040727
  Transmission Date: 20050211
  Serious: Yes (Other)
  Sender: FDA-Public Use
  Company Number: US-GLAXOSMITHKLINE-A0519887A

PATIENT
  Age: 61 Year
  Sex: Male

DRUGS (8)
  1. ADVAIR DISKUS 100/50 [Suspect]
     Indication: ASTHMA
     Dosage: 1PUFF TWICE PER DAY
     Route: 055
  2. COMBIVENT [Concomitant]
  3. GLYBURIDE [Concomitant]
  4. METFORMIN HCL [Concomitant]
  5. DIGOXIN [Concomitant]
  6. FUROSEMIDE [Concomitant]
  7. CAPTOPRIL [Concomitant]
  8. SPIRONOLACTONE [Concomitant]

REACTIONS (1)
  - DRUG INEFFECTIVE [None]
